FAERS Safety Report 24156291 (Version 1)
Quarter: 2024Q3

REPORT INFORMATION
  Report Type: Spontaneous
  Country: US (occurrence: None)
  Receive Date: 20240730
  Receipt Date: 20240730
  Transmission Date: 20241017
  Serious: Yes (unspecified)
  Sender: Public
  Company Number: None

PATIENT
  Age: 50 Year
  Sex: Female

DRUGS (1)
  1. CAPECITABINE [Suspect]
     Active Substance: CAPECITABINE
     Indication: Colon cancer
     Dosage: FREQUENCY : DAILY;?

REACTIONS (12)
  - Nausea [None]
  - Constipation [None]
  - Pyrexia [None]
  - Fatigue [None]
  - Dizziness [None]
  - Pulmonary oedema [None]
  - Dysmenorrhoea [None]
  - Abdominal pain [None]
  - Dyspnoea [None]
  - Asthma [None]
  - Tachycardia [None]
  - Cough [None]
